FAERS Safety Report 6021543-3 (Version None)
Quarter: 2008Q4

REPORT INFORMATION
  Report Type: 
  Country: None (occurrence: None)
  Receive Date: 20081229
  Receipt Date: 20081216
  Transmission Date: 20090506
  Serious: Yes (Other)
  Sender: FDA-Public Use
  Company Number: PHHY2008NZ32047

PATIENT
  Sex: Female

DRUGS (3)
  1. CLOZARIL [Suspect]
     Indication: SCHIZOPHRENIA
     Dosage: 50 MG MANE, 400 MG NOCTE
     Dates: start: 20061030
  2. OLANZAPINE [Concomitant]
     Dosage: UNK
     Dates: end: 20081212
  3. AMISULPRIDE [Concomitant]
     Dosage: 100 MG, BID

REACTIONS (6)
  - CHEST PAIN [None]
  - MYOCARDIAL INFARCTION [None]
  - MYOCARDIAL ISCHAEMIA [None]
  - OEDEMA PERIPHERAL [None]
  - TROPONIN T INCREASED [None]
  - VARICOSE VEIN [None]
